FAERS Safety Report 4791243-6 (Version None)
Quarter: 2005Q4

REPORT INFORMATION
  Report Type: 
  Country: None (occurrence: None)
  Receive Date: 20051007
  Receipt Date: 20050816
  Transmission Date: 20060501
  Serious: No
  Sender: FDA-Public Use
  Company Number: US-BRISTOL-MYERS SQUIBB COMPANY-13079322

PATIENT
  Age: 50 Year
  Sex: Female
  Weight: 98 kg

DRUGS (3)
  1. METAGLIP [Suspect]
     Dosage: DOSAGE FORM  = 5MG/500MG= METFORMIN 500 MG, GLIPIZIDE 5 MG
  2. ATENOLOL [Concomitant]
  3. NIACIN [Concomitant]

REACTIONS (1)
  - RASH GENERALISED [None]
